FAERS Safety Report 12866759 (Version 1)
Quarter: 2016Q4

REPORT INFORMATION
  Report Type: Spontaneous
  Country: US (occurrence: US)
  Receive Date: 20161020
  Receipt Date: 20161020
  Transmission Date: 20170207
  Serious: No
  Sender: FDA-Public Use
  Company Number: US-BAUSCH-BL-2016-020959

PATIENT
  Sex: Female

DRUGS (4)
  1. WELLBUTRIN XL [Suspect]
     Active Substance: BUPROPION HYDROCHLORIDE
     Indication: SEASONAL AFFECTIVE DISORDER
     Route: 048
  2. WELLBUTRIN SR [Suspect]
     Active Substance: BUPROPION HYDROCHLORIDE
     Indication: SEASONAL AFFECTIVE DISORDER
     Route: 048
     Dates: start: 20160529
  3. BUPROPION HYDROCLORIDE [Suspect]
     Active Substance: BUPROPION HYDROCHLORIDE
     Indication: SEASONAL AFFECTIVE DISORDER
     Dates: start: 201502
  4. BUPROPION SR [Suspect]
     Active Substance: BUPROPION
     Indication: SEASONAL AFFECTIVE DISORDER
     Route: 048

REACTIONS (5)
  - Blood pressure abnormal [Unknown]
  - Off label use [Unknown]
  - Drug ineffective [Recovering/Resolving]
  - Cardiac disorder [Unknown]
  - Product quality issue [Unknown]
